FAERS Safety Report 12890030 (Version 1)
Quarter: 2016Q4

REPORT INFORMATION
  Report Type: Spontaneous
  Country: US (occurrence: US)
  Receive Date: 20161027
  Receipt Date: 20161027
  Transmission Date: 20170207
  Serious: No
  Sender: FDA-Public Use
  Company Number: US-ASCEND THERAPEUTICS-1058968

PATIENT
  Age: 56 Year
  Sex: Female

DRUGS (3)
  1. MINIVELLE [Concomitant]
     Active Substance: ESTRADIOL
     Route: 062
     Dates: end: 20160701
  2. PROGESTERONE. [Concomitant]
     Active Substance: PROGESTERONE
  3. ESTROGEL [Suspect]
     Active Substance: ESTRADIOL
     Indication: INSOMNIA
     Route: 062
     Dates: start: 20151201, end: 20160701

REACTIONS (1)
  - Dyspepsia [Unknown]

NARRATIVE: CASE EVENT DATE: 20160625
